FAERS Safety Report 12884469 (Version 3)
Quarter: 2017Q4

REPORT INFORMATION
  Report Type: Spontaneous
  Country: IT (occurrence: IT)
  Receive Date: 20161026
  Receipt Date: 20171009
  Transmission Date: 20180320
  Serious: Yes (Hospitalization)
  Sender: FDA-Public Use
  Company Number: IT-SA-2016SA191634

PATIENT
  Sex: Female

DRUGS (17)
  1. LANTUS SOLOSTAR [Suspect]
     Active Substance: INSULIN GLARGINE
     Indication: DIABETES MELLITUS
     Dosage: DOSE:14 UNIT(S)
     Route: 058
  2. APROVEL [Concomitant]
     Active Substance: IRBESARTAN
     Dosage: STRENGTH: 300 MG
     Route: 065
  3. COUMADIN [Concomitant]
     Active Substance: WARFARIN SODIUM
     Dosage: STRENGTH:5 MG DIVISIBLE TABLETS
     Route: 065
  4. LASIX [Concomitant]
     Active Substance: FUROSEMIDE
     Dosage: STRENGTH: 25 MG?3 TABLET ALTERNATE TO 500 MG ? TABLET AT LUNCH AND 500 MG 1/2 TABLET IN THE EVENING
     Route: 065
  5. TRIATEC [Concomitant]
     Active Substance: RAMIPRIL
     Route: 065
  6. TRITACE [Concomitant]
     Active Substance: RAMIPRIL
     Dosage: STRENGTH: 5 MG
     Route: 065
  7. NITRODERM [Concomitant]
     Active Substance: NITROGLYCERIN
     Dosage: FORM: TRANSDERMAL PATCHES
     Route: 065
  8. CARDURA [Concomitant]
     Active Substance: DOXAZOSIN MESYLATE
     Dosage: STRENGTH: 2 MG
     Route: 065
  9. TORVAST [Concomitant]
     Active Substance: ATORVASTATIN
     Route: 065
  10. CORDARONE [Concomitant]
     Active Substance: AMIODARONE HYDROCHLORIDE
     Dosage: STRENGTH: 200 MG
     Route: 065
  11. LASIX [Concomitant]
     Active Substance: FUROSEMIDE
     Dosage: STRENGTH: 500 MG
     Route: 065
  12. NITROGLYCERIN. [Concomitant]
     Active Substance: NITROGLYCERIN
     Dosage: 10MG 1 PATCH
     Route: 065
  13. NOVORAPID [Suspect]
     Active Substance: INSULIN ASPART
     Indication: DIABETES MELLITUS
     Dosage: 3 UNITS AT BREAKFAST, 12 UNITS AT LUNCH AND 8 UNITS AT DINNER
     Route: 058
  14. LYRICA [Concomitant]
     Active Substance: PREGABALIN
     Dosage: STRENGTH:25 MG HARD CAPSULE
     Route: 065
  15. SOLOSTAR [Suspect]
     Active Substance: DEVICE
     Indication: DIABETES MELLITUS
  16. CARDICOR [Concomitant]
     Active Substance: BISOPROLOL
     Dosage: STRENGTH: 1.25MG
     Route: 065
  17. ROCALTROL [Concomitant]
     Active Substance: CALCITRIOL
     Dosage: STREGTH AND FORM: 0.50MCG SOFT CAPSULE
     Route: 065

REACTIONS (4)
  - Hypoglycaemic unconsciousness [Recovered/Resolved]
  - Compensatory sweating [Recovered/Resolved]
  - Hypoglycaemia [Recovered/Resolved]
  - Malaise [Recovered/Resolved]

NARRATIVE: CASE EVENT DATE: 20160308
